FAERS Safety Report 6129679-3 (Version None)
Quarter: 2009Q1

REPORT INFORMATION
  Report Type: 
  Country: None (occurrence: None)
  Receive Date: 20090323
  Receipt Date: 20090323
  Transmission Date: 20090719
  Serious: No
  Sender: FDA-Public Use
  Company Number: None

PATIENT
  Age: 47 Year
  Sex: Female
  Weight: 52.1637 kg

DRUGS (2)
  1. CEFTRIAXONE [Suspect]
     Indication: LYME DISEASE
     Dosage: 2G Q24HR IV DRIP
     Route: 041
     Dates: start: 20090302, end: 20090330
  2. CEFTRIAXONE [Suspect]

REACTIONS (1)
  - RASH [None]
